FAERS Safety Report 4886644-1 (Version None)
Quarter: 2006Q1

REPORT INFORMATION
  Report Type: 
  Country: None (occurrence: None)
  Receive Date: 20060120
  Receipt Date: 20060111
  Transmission Date: 20060701
  Serious: Yes (Other)
  Sender: FDA-Public Use
  Company Number: PHNU2006DE00521

PATIENT
  Sex: Male
  Weight: 61 kg

DRUGS (1)
  1. ZOMETA [Suspect]
     Indication: PROSTATE CANCER METASTATIC
     Route: 042
     Dates: start: 20030428, end: 20050429

REACTIONS (4)
  - IMPAIRED HEALING [None]
  - OSTEOMYELITIS CHRONIC [None]
  - TOOTH DISORDER [None]
  - TOOTH EXTRACTION [None]
